FAERS Safety Report 21056407 (Version 2)
Quarter: 2022Q3

REPORT INFORMATION
  Report Type: Spontaneous
  Country: CN (occurrence: None)
  Receive Date: 20220708
  Receipt Date: 20220712
  Transmission Date: 20221027
  Serious: Yes (Other)
  Sender: FDA-Public Use
  Company Number: 2022A243083

PATIENT
  Age: 72 Year
  Sex: Female
  Weight: 50 kg

DRUGS (3)
  1. IMFINZI [Suspect]
     Active Substance: DURVALUMAB
     Indication: Small cell lung cancer extensive stage
     Dosage: 1000.0MG EVERY CYCLE
     Route: 042
     Dates: start: 20220105
  2. ETOPOSIDE [Concomitant]
     Active Substance: ETOPOSIDE
     Route: 065
  3. CARBOPLATIN [Concomitant]
     Active Substance: CARBOPLATIN
     Route: 065

REACTIONS (1)
  - Brain oedema [Recovering/Resolving]
